FAERS Safety Report 15114425 (Version 3)
Quarter: 2018Q4

REPORT INFORMATION
  Report Type: Report from Study
  Country: US (occurrence: US)
  Receive Date: 20180706
  Receipt Date: 20181203
  Transmission Date: 20190204
  Serious: No
  Sender: FDA-Public Use
  Company Number: US-IPSEN BIOPHARMACEUTICALS, INC.-2017-13319

PATIENT
  Age: 2 Year
  Sex: Male
  Weight: 13.1 kg

DRUGS (10)
  1. PHENOL/ALCOHOL [Concomitant]
     Route: 030
     Dates: start: 20180102, end: 20180102
  2. PHENOL/ALCOHOL [Concomitant]
     Route: 030
     Dates: start: 20180703, end: 20180703
  3. DYSPORT [Suspect]
     Active Substance: ABOBOTULINUMTOXINA
     Indication: MUSCLE SPASTICITY
     Dosage: 650 UNITS
     Route: 030
     Dates: start: 20170801, end: 20170801
  4. BACLOFEN. [Concomitant]
     Active Substance: BACLOFEN
     Route: 048
     Dates: start: 20181023
  5. DYSPORT [Suspect]
     Active Substance: ABOBOTULINUMTOXINA
     Indication: OFF LABEL USE
     Route: 030
     Dates: start: 20180703, end: 20180703
  6. PHENOL/ALCOHOL [Concomitant]
     Indication: MUSCLE SPASTICITY
     Route: 030
     Dates: start: 20170801, end: 20170801
  7. BACLOFEN. [Concomitant]
     Active Substance: BACLOFEN
     Indication: MUSCLE SPASTICITY
     Route: 048
     Dates: start: 20161129
  8. KEPPRA [Concomitant]
     Active Substance: LEVETIRACETAM
     Indication: SEIZURE
     Route: 048
     Dates: start: 20170201
  9. DYSPORT [Suspect]
     Active Substance: ABOBOTULINUMTOXINA
     Indication: MUSCLE SPASTICITY
     Dosage: 150 UNITS
     Route: 030
     Dates: start: 20180102, end: 20180102
  10. DIASTAT [Concomitant]
     Active Substance: DIAZEPAM
     Indication: SEIZURE
     Route: 054
     Dates: start: 20170124

REACTIONS (3)
  - Intentional product use issue [Unknown]
  - Poor quality sleep [Unknown]
  - Diarrhoea [Recovered/Resolved]

NARRATIVE: CASE EVENT DATE: 20171210
